FAERS Safety Report 5912897-4 (Version None)
Quarter: 2008Q4

REPORT INFORMATION
  Report Type: 
  Country: None (occurrence: None)
  Receive Date: 20081008
  Receipt Date: 20080926
  Transmission Date: 20090506
  Serious: Yes (Other)
  Sender: FDA-Public Use
  Company Number: BR-PFIZER INC-2008082077

PATIENT
  Sex: Male
  Weight: 100 kg

DRUGS (15)
  1. FRONTAL [Suspect]
     Indication: ANXIETY
     Route: 048
     Dates: start: 20000101
  2. FRONTAL [Suspect]
     Indication: INSOMNIA
  3. OMEPRAZOLE [Concomitant]
  4. PURAN T4 [Concomitant]
     Route: 065
  5. SERTRALINE [Concomitant]
     Route: 065
  6. INSULIN [Concomitant]
     Route: 065
  7. CLEXANE [Concomitant]
     Route: 065
  8. ALDACTONE [Concomitant]
     Route: 065
  9. HIDANTAL [Concomitant]
     Route: 065
  10. AMITRIPTYLINE HCL [Concomitant]
     Route: 065
  11. SLOW-K [Concomitant]
     Route: 065
  12. PREDNISONE TAB [Concomitant]
     Route: 065
  13. CENTRUM [Concomitant]
     Route: 065
  14. VITAMIN E [Concomitant]
     Route: 065
  15. LOPERAMIDE HCL [Concomitant]
     Route: 065

REACTIONS (4)
  - DRUG INEFFECTIVE [None]
  - GASTROSTOMY [None]
  - GUILLAIN-BARRE SYNDROME [None]
  - INTENTIONAL DRUG MISUSE [None]
